FAERS Safety Report 24308945 (Version 3)
Quarter: 2024Q4

REPORT INFORMATION
  Report Type: Spontaneous
  Country: HU (occurrence: HU)
  Receive Date: 20240911
  Receipt Date: 20241011
  Transmission Date: 20250115
  Serious: Yes (Death, Hospitalization, Other)
  Sender: PFIZER
  Company Number: HU-TEVA-VS-3238573

PATIENT
  Age: 7 Year
  Sex: Male

DRUGS (15)
  1. CYTARABINE [Suspect]
     Active Substance: CYTARABINE
     Indication: B precursor type acute leukaemia
     Dosage: ALL IC BFM PROTOCOL
  2. CYTARABINE [Suspect]
     Active Substance: CYTARABINE
     Dosage: ALL-IC-REL V1.1 PROTOCOL
  3. DAUNORUBICIN HYDROCHLORIDE [Suspect]
     Active Substance: DAUNORUBICIN HYDROCHLORIDE
     Indication: B precursor type acute leukaemia
     Dosage: ALL IC BFM PROTOCOL
  4. METHOTREXATE [Suspect]
     Active Substance: METHOTREXATE
     Indication: B precursor type acute leukaemia
     Dosage: ALL IC BFM PROTOCOL
  5. METHOTREXATE [Suspect]
     Active Substance: METHOTREXATE
     Dosage: MAINTENANCE TREATMENT
     Dates: start: 202207
  6. MERCAPTOPURINE [Suspect]
     Active Substance: MERCAPTOPURINE
     Indication: B precursor type acute leukaemia
     Dosage: ALL IC BFM PROTOCOL
  7. MERCAPTOPURINE [Suspect]
     Active Substance: MERCAPTOPURINE
     Dosage: MAINTENANCE TREATMENT
     Dates: start: 202207
  8. CYCLOPHOSPHAMIDE [Suspect]
     Active Substance: CYCLOPHOSPHAMIDE
     Indication: B precursor type acute leukaemia
     Dosage: ALL IC BFM PROTOCOL
  9. VINCRISTINE [Suspect]
     Active Substance: VINCRISTINE
     Indication: B precursor type acute leukaemia
     Dosage: ALL IC BFM PROTOCOL
  10. VINCRISTINE [Suspect]
     Active Substance: VINCRISTINE
     Dosage: ALL-IC-REL V1.1 PROTOCOL
  11. ASPARAGINASE [Suspect]
     Active Substance: ASPARAGINASE
     Indication: B precursor type acute leukaemia
     Dosage: ALL IC BFM PROTOCOL
  12. ASPARAGINASE [Suspect]
     Active Substance: ASPARAGINASE
     Dosage: ALL-IC-REL V1.1 PROTOCOL
  13. DEXAMETHASONE [Suspect]
     Active Substance: DEXAMETHASONE
     Indication: B precursor type acute leukaemia
     Dosage: ALL-IC-REL V1.1 PROTOCOL
  14. PREDNISOLONE [Concomitant]
     Active Substance: PREDNISOLONE
     Indication: B precursor type acute leukaemia
     Dosage: ALL IC BFM PROTOCOL
  15. PREDNISOLONE [Concomitant]
     Active Substance: PREDNISOLONE
     Dosage: ALL-IC-REL V1.1 PROTOCOL

REACTIONS (3)
  - Cerebral atrophy [Fatal]
  - Subdural haemorrhage [Fatal]
  - Brain injury [Fatal]

NARRATIVE: CASE EVENT DATE: 20230724
